APPROVED DRUG PRODUCT: ROZEREM
Active Ingredient: RAMELTEON
Strength: 8MG
Dosage Form/Route: TABLET;ORAL
Application: N021782 | Product #001 | TE Code: AB
Applicant: TAKEDA PHARMACEUTICALS USA INC
Approved: Jul 22, 2005 | RLD: Yes | RS: Yes | Type: RX